FAERS Safety Report 12601259 (Version 3)
Quarter: 2016Q3

REPORT INFORMATION
  Report Type: Spontaneous
  Country: US (occurrence: US)
  Receive Date: 20160728
  Receipt Date: 20160808
  Transmission Date: 20161109
  Serious: No
  Sender: FDA-Public Use
  Company Number: US-BEH-2016062735

PATIENT
  Age: 56 Year
  Sex: Female
  Weight: 72 kg

DRUGS (17)
  1. CALTRATE WITH VIT D [Concomitant]
  2. GEMFIBROZIL. [Concomitant]
     Active Substance: GEMFIBROZIL
  3. TRIAMCINOLONE [Concomitant]
     Active Substance: TRIAMCINOLONE
  4. VENTOLIN [Concomitant]
     Active Substance: ALBUTEROL SULFATE
  5. HYDROCODONE-ACETAMINOPHEN [Concomitant]
     Active Substance: ACETAMINOPHEN\HYDROCODONE
  6. PREDNISONE. [Concomitant]
     Active Substance: PREDNISONE
  7. CYMBALTA [Concomitant]
     Active Substance: DULOXETINE HYDROCHLORIDE
  8. HIZENTRA [Suspect]
     Active Substance: HUMAN IMMUNOGLOBULIN G
     Indication: IMMUNODEFICIENCY COMMON VARIABLE
     Route: 058
  9. CLONAZEPAM. [Concomitant]
     Active Substance: CLONAZEPAM
  10. EPIPEN [Concomitant]
     Active Substance: EPINEPHRINE
  11. OXYGEN. [Concomitant]
     Active Substance: OXYGEN
  12. SERTRALINE [Concomitant]
     Active Substance: SERTRALINE HYDROCHLORIDE
  13. AMBIEN [Concomitant]
     Active Substance: ZOLPIDEM TARTRATE
  14. ALLEGRA-D [Concomitant]
     Active Substance: FEXOFENADINE\PSEUDOEPHEDRINE
  15. ACCOLATE [Concomitant]
     Active Substance: ZAFIRLUKAST
  16. PREVACID [Concomitant]
     Active Substance: LANSOPRAZOLE
  17. SPIRIVA [Concomitant]
     Active Substance: TIOTROPIUM BROMIDE MONOHYDRATE

REACTIONS (8)
  - Sinusitis [Unknown]
  - Middle ear effusion [Unknown]
  - Pharyngeal erythema [Unknown]
  - Chills [Unknown]
  - Headache [Unknown]
  - Facial pain [Unknown]
  - Feeling abnormal [Unknown]
  - Thyroid disorder [Unknown]

NARRATIVE: CASE EVENT DATE: 20160315
